FAERS Safety Report 7286043-1 (Version None)
Quarter: 2011Q1

REPORT INFORMATION
  Report Type: 
  Country: None (occurrence: None)
  Receive Date: 20110126
  Receipt Date: 20110112
  Transmission Date: 20110831
  Serious: Yes (Hospitalization)
  Sender: FDA-Public Use
  Company Number: 2010P1003456

PATIENT
  Age: 81 Year
  Sex: Female
  Weight: 58.9676 kg

DRUGS (15)
  1. EXTRA STRENGTH TYLENOL [Concomitant]
  2. LEXAPRO [Suspect]
     Indication: DEPRESSIVE SYMPTOM
     Dosage: 20 MG; PO
     Route: 048
     Dates: end: 20101101
  3. FENTANYL-50 [Suspect]
     Indication: BACK PAIN
     Dosage: (50 MCG/HR; Q 72 HR; TDER) (50 MCG/HR; Q 72 HR; TDER)
     Route: 062
     Dates: start: 20100601
  4. FENTANYL-50 [Suspect]
     Indication: BACK PAIN
     Dosage: (50 MCG/HR; Q 72 HR; TDER) (50 MCG/HR; Q 72 HR; TDER)
     Route: 062
     Dates: start: 20090901, end: 20100601
  5. MILK OF MAGNESIA TAB [Concomitant]
  6. FUROSEMIDE [Suspect]
     Indication: FLUID RETENTION
     Dosage: 40 MG; QD; PO
     Route: 048
  7. FENTANYL [Suspect]
     Indication: BACK PAIN
     Dosage: 75 MCG/HR; Q 72 HR; TDER
     Route: 062
     Dates: start: 20100601
  8. AMLODIPINE [Concomitant]
  9. RE DUALVIT PLUS (IRON) [Concomitant]
  10. VITAMIN D [Concomitant]
  11. PANTOPRAZOLE [Concomitant]
  12. POTASSIUM CHLORIDE 10MEQ [Concomitant]
  13. SERTALINE 50 MG (NO PREF. NAME) [Suspect]
     Indication: DEPRESSIVE SYMPTOM
     Dosage: 50 MG; QD
     Dates: start: 20101101
  14. DIAZYDE [Concomitant]
  15. DETROL LA [Concomitant]

REACTIONS (10)
  - BLOOD POTASSIUM DECREASED [None]
  - INTESTINAL OBSTRUCTION [None]
  - FLUID RETENTION [None]
  - ILEUS [None]
  - DRUG INEFFECTIVE [None]
  - DEPRESSION [None]
  - ATRIAL FIBRILLATION [None]
  - DECREASED INTEREST [None]
  - CONDITION AGGRAVATED [None]
  - CRYING [None]
